FAERS Safety Report 9798069 (Version 1)
Quarter: 2014Q1

REPORT INFORMATION
  Report Type: Spontaneous
  Country: US (occurrence: None)
  Receive Date: 20140102
  Receipt Date: 20140102
  Transmission Date: 20141002
  Serious: Yes (Other)
  Sender: FDA-Public Use
  Company Number: None

PATIENT
  Age: 51 Year
  Sex: Female

DRUGS (1)
  1. ENBREL 50MG AMGEN [Suspect]
     Dosage: 714.0 INJECTABLE, QWEEK
     Dates: start: 201308

REACTIONS (2)
  - Tremor [None]
  - Convulsion [None]
